FAERS Safety Report 18397457 (Version 1)
Quarter: 2020Q4

REPORT INFORMATION
  Report Type: Spontaneous
  Country: US (occurrence: US)
  Receive Date: 20201019
  Receipt Date: 20201019
  Transmission Date: 20210114
  Serious: No
  Sender: FDA-Public Use
  Company Number: None

PATIENT
  Sex: Female

DRUGS (1)
  1. IBRANCE [Suspect]
     Active Substance: PALBOCICLIB
     Indication: BREAST CANCER
     Dosage: DAILY 21 DAYS ON 7 OFF
     Route: 048
     Dates: start: 202009

REACTIONS (3)
  - Sensitive skin [None]
  - Stomatitis [None]
  - Alopecia [None]
